FAERS Safety Report 8546613-7 (Version None)
Quarter: 2012Q3

REPORT INFORMATION
  Report Type: 
  Country: None (occurrence: None)
  Receive Date: 20120727
  Receipt Date: 20111230
  Transmission Date: 20120928
  Serious: No
  Sender: FDA-Public Use
  Company Number: US-ASTRAZENECA-2012SE00136

PATIENT
  Sex: Female

DRUGS (3)
  1. NAMENDA [Suspect]
  2. SEROQUEL [Suspect]
     Route: 048
  3. ZOLOFT [Suspect]

REACTIONS (5)
  - ASTHENIA [None]
  - TREMOR [None]
  - MUSCULOSKELETAL STIFFNESS [None]
  - DRUG DOSE OMISSION [None]
  - MOVEMENT DISORDER [None]
